FAERS Safety Report 23800044 (Version 1)
Quarter: 2024Q2

REPORT INFORMATION
  Report Type: Spontaneous
  Country: US (occurrence: None)
  Receive Date: 20240429
  Receipt Date: 20240429
  Transmission Date: 20240715
  Serious: Yes (Life-Threatening)
  Sender: FDA-Public Use
  Company Number: None

PATIENT
  Age: 28 Year
  Sex: Female
  Weight: 111.6 kg

DRUGS (4)
  1. MACROBID [Suspect]
     Active Substance: NITROFURANTOIN\NITROFURANTOIN MONOHYDRATE
     Dates: start: 20240427, end: 20240428
  2. UNSPECIFIED INGREDIENT [Concomitant]
     Active Substance: UNSPECIFIED INGREDIENT
  3. METFORMIN [Concomitant]
     Active Substance: METFORMIN HYDROCHLORIDE
  4. BLOOD SUGAR CONTROL SUPPLEMENTS [Concomitant]

REACTIONS (6)
  - Psychotic disorder [None]
  - Suicidal ideation [None]
  - Tremor [None]
  - Delusion [None]
  - Self-injurious ideation [None]
  - Mania [None]

NARRATIVE: CASE EVENT DATE: 20240427
